FAERS Safety Report 9968037 (Version 1)
Quarter: 2014Q1

REPORT INFORMATION
  Report Type: Report from Study
  Country: US (occurrence: US)
  Receive Date: 20140306
  Receipt Date: 20140306
  Transmission Date: 20141002
  Serious: No
  Sender: FDA-Public Use
  Company Number: US-ABBVIE-13P-163-1152424-00

PATIENT
  Sex: Female

DRUGS (6)
  1. HUMIRA [Suspect]
     Indication: CROHN^S DISEASE
     Dates: start: 20130912
  2. METHOTREXATE [Concomitant]
     Indication: CROHN^S DISEASE
  3. BIRTH CONTROL PILLS [Concomitant]
     Indication: CONTRACEPTION
  4. IRON [Concomitant]
     Indication: BLOOD IRON DECREASED
  5. IRON [Concomitant]
     Indication: ANAEMIA
  6. FOLIC ACID [Concomitant]
     Indication: PRODUCT USED FOR UNKNOWN INDICATION

REACTIONS (2)
  - Vitamin B12 deficiency [Unknown]
  - Ear infection [Not Recovered/Not Resolved]
